FAERS Safety Report 21216550 (Version 3)
Quarter: 2023Q4

REPORT INFORMATION
  Report Type: Report from Study
  Country: US (occurrence: US)
  Receive Date: 20220816
  Receipt Date: 20231213
  Transmission Date: 20240110
  Serious: Yes (Hospitalization)
  Sender: FDA-Public Use
  Company Number: US-UCBSA-2022046885

PATIENT
  Age: 46 Year
  Sex: Male

DRUGS (3)
  1. LEVETIRACETAM [Suspect]
     Active Substance: LEVETIRACETAM
     Indication: Epilepsy
     Dosage: 100 MILLIGRAM, 2X/DAY (BID)(200MG PILL THAT SHE CUTS IN HALF DAILY FOR MORNING AND NIGHT)
  2. VIMPAT [Suspect]
     Active Substance: LACOSAMIDE
     Indication: Epilepsy
     Dosage: UNK
     Route: 042
     Dates: start: 202009, end: 20231206
  3. VIMPAT [Suspect]
     Active Substance: LACOSAMIDE
     Indication: Encephalitis

REACTIONS (9)
  - Seizure [Unknown]
  - Hypersomnia [Unknown]
  - Hospitalisation [Unknown]
  - Anger [Unknown]
  - Personality change [Not Recovered/Not Resolved]
  - Emotional disorder [Unknown]
  - Depression [Unknown]
  - Product use in unapproved indication [Unknown]
  - Wrong technique in product usage process [Unknown]

NARRATIVE: CASE EVENT DATE: 20200907
